FAERS Safety Report 25606639 (Version 1)
Quarter: 2025Q3

REPORT INFORMATION
  Report Type: Spontaneous
  Country: US (occurrence: None)
  Receive Date: 20250724
  Receipt Date: 20250724
  Transmission Date: 20251020
  Serious: Yes (Life-Threatening, Hospitalization, Disabling, Other)
  Sender: FDA-CTU
  Company Number: None

PATIENT
  Age: 69 Year
  Sex: Female
  Weight: 81.9 kg

DRUGS (8)
  1. MOUNJARO [Suspect]
     Active Substance: TIRZEPATIDE
     Indication: Type 2 diabetes mellitus
     Route: 058
     Dates: start: 20240303, end: 20240719
  2. DEVICE [Concomitant]
     Active Substance: DEVICE
  3. EZETIMIBE [Concomitant]
     Active Substance: EZETIMIBE
  4. WARFARIN [Concomitant]
     Active Substance: WARFARIN
  5. ATENOLOL [Concomitant]
     Active Substance: ATENOLOL
  6. OMEPRAZOLE [Concomitant]
     Active Substance: OMEPRAZOLE
  7. LASIX [Concomitant]
     Active Substance: FUROSEMIDE
  8. VITAMIN D [Concomitant]
     Active Substance: VITAMIN D NOS

REACTIONS (3)
  - Acute kidney injury [None]
  - Anaemia [None]
  - Thrombotic thrombocytopenic purpura [None]

NARRATIVE: CASE EVENT DATE: 20240725
